FAERS Safety Report 16558679 (Version 3)
Quarter: 2019Q3

REPORT INFORMATION
  Report Type: Spontaneous
  Country: AU (occurrence: AU)
  Receive Date: 20190711
  Receipt Date: 20190822
  Transmission Date: 20191004
  Serious: Yes (Other)
  Sender: FDA-Public Use
  Company Number: AU-JNJFOC-20190635858

PATIENT
  Age: 55 Year
  Sex: Male

DRUGS (5)
  1. SODIUM VALPROATE [Suspect]
     Active Substance: VALPROATE SODIUM
     Indication: PRODUCT USED FOR UNKNOWN INDICATION
     Route: 065
  2. AMISULPRIDE [Suspect]
     Active Substance: AMISULPRIDE
     Indication: PRODUCT USED FOR UNKNOWN INDICATION
     Route: 065
  3. HALOPERIDOL. [Suspect]
     Active Substance: HALOPERIDOL
     Indication: PRODUCT USED FOR UNKNOWN INDICATION
     Route: 065
  4. CLOZAPINE. [Suspect]
     Active Substance: CLOZAPINE
     Indication: PRODUCT USED FOR UNKNOWN INDICATION
     Route: 065
  5. QUETIAPINE FUMARATE. [Suspect]
     Active Substance: QUETIAPINE FUMARATE
     Indication: PRODUCT USED FOR UNKNOWN INDICATION
     Route: 065

REACTIONS (16)
  - Epstein-Barr virus infection [Unknown]
  - Monocyte count increased [Unknown]
  - Neutropenia [Unknown]
  - Disease recurrence [Unknown]
  - Psychotic symptom [Unknown]
  - Antipsychotic drug level below therapeutic [Unknown]
  - Drug ineffective [Unknown]
  - Autonomic neuropathy [Unknown]
  - Neuroleptic malignant syndrome [Unknown]
  - Red blood cell count decreased [Unknown]
  - Platelet count increased [Unknown]
  - Leukopenia [Unknown]
  - Agitation [Unknown]
  - Haemoglobin decreased [Unknown]
  - Mania [Unknown]
  - Lymphocyte count increased [Unknown]
